FAERS Safety Report 15022014 (Version 4)
Quarter: 2018Q4

REPORT INFORMATION
  Report Type: Spontaneous
  Country: US (occurrence: US)
  Receive Date: 20180618
  Receipt Date: 20181213
  Transmission Date: 20190204
  Serious: Yes (Hospitalization, Other)
  Sender: FDA-Public Use
  Company Number: US-PFIZER INC-2018247405

PATIENT
  Age: 50 Year
  Sex: Female
  Weight: 185 kg

DRUGS (2)
  1. IBRANCE [Suspect]
     Active Substance: PALBOCICLIB
     Indication: BREAST CANCER METASTATIC
     Dosage: 125 MG, CYCLIC [D1-21 Q28 DAYS]
     Route: 048
     Dates: start: 20180607
  2. IBRANCE [Suspect]
     Active Substance: PALBOCICLIB
     Dosage: 125 MG, CYCLIC [D1-21 Q28 DAYS]
     Route: 048
     Dates: start: 20180607

REACTIONS (6)
  - Pain [Unknown]
  - Nerve compression [Unknown]
  - Lung infection [Unknown]
  - Fatigue [Unknown]
  - Nausea [Unknown]
  - Productive cough [Unknown]
